FAERS Safety Report 9966500 (Version 2)
Quarter: 2014Q1

REPORT INFORMATION
  Report Type: Report from Study
  Country: US (occurrence: US)
  Receive Date: 20140305
  Receipt Date: 20140305
  Transmission Date: 20141002
  Serious: No
  Sender: FDA-Public Use
  Company Number: US-ABBVIE-13P-163-1112848-00

PATIENT
  Age: 46 Year
  Sex: Female
  Weight: 65.83 kg

DRUGS (3)
  1. HUMIRA [Suspect]
     Indication: PSORIASIS
     Dates: start: 201302
  2. XOPENEX [Concomitant]
     Indication: ASTHMA
     Dosage: PRN
  3. UNKNOWN BLOOD PRESSURE MEDICATION [Concomitant]
     Indication: HYPERTENSION

REACTIONS (6)
  - Asthma [Recovered/Resolved]
  - Therapeutic response unexpected [Recovered/Resolved]
  - Blood pressure [Recovered/Resolved]
  - Rheumatoid arthritis [Recovered/Resolved]
  - Psoriasis [Recovered/Resolved]
  - Pigmentation disorder [Unknown]
